FAERS Safety Report 21805048 (Version 1)
Quarter: 2023Q1

REPORT INFORMATION
  Report Type: Spontaneous
  Country: US (occurrence: US)
  Receive Date: 20230102
  Receipt Date: 20230102
  Transmission Date: 20230418
  Serious: No
  Sender: FDA-Public Use
  Company Number: US-SA-SAC20221229000233

PATIENT
  Sex: Female
  Weight: 141 kg

DRUGS (17)
  1. DUPIXENT [Suspect]
     Active Substance: DUPILUMAB
     Indication: Dermatitis atopic
     Dosage: 300 MG, QOW
     Route: 058
     Dates: start: 202104
  2. RINVOQ [Concomitant]
     Active Substance: UPADACITINIB
  3. ADVIL [Concomitant]
     Active Substance: IBUPROFEN
  4. IRON [Concomitant]
     Active Substance: IRON
  5. CLOBETASOL PROPIONATE [Concomitant]
     Active Substance: CLOBETASOL PROPIONATE
  6. PREGABALIN [Concomitant]
     Active Substance: PREGABALIN
  7. TRULICITY [Concomitant]
     Active Substance: DULAGLUTIDE
  8. ATORVASTATIN CALCIUM [Concomitant]
     Active Substance: ATORVASTATIN CALCIUM
  9. METOPROLOL TARTRATE [Concomitant]
     Active Substance: METOPROLOL TARTRATE
  10. POTASSIUM CHLORIDE [Concomitant]
     Active Substance: POTASSIUM CHLORIDE
  11. FLUTICASONE PROPIONATE [Concomitant]
     Active Substance: FLUTICASONE PROPIONATE
  12. VITAMIN D2 [Concomitant]
     Active Substance: ERGOCALCIFEROL
  13. AZELASTINE HYDROCHLORIDE [Concomitant]
     Active Substance: AZELASTINE HYDROCHLORIDE
  14. ALLOPURINOL [Concomitant]
     Active Substance: ALLOPURINOL
  15. FLUCONAZOLE [Concomitant]
     Active Substance: FLUCONAZOLE
  16. CHLORTHALIDONE [Concomitant]
     Active Substance: CHLORTHALIDONE
  17. OMEPRAZOLE [Concomitant]
     Active Substance: OMEPRAZOLE

REACTIONS (1)
  - Pruritus [Recovering/Resolving]
